FAERS Safety Report 4407456-9 (Version None)
Quarter: 2004Q3

REPORT INFORMATION
  Report Type: 
  Country: None (occurrence: None)
  Receive Date: 20040721
  Receipt Date: 20040630
  Transmission Date: 20050211
  Serious: Yes (Hospitalization)
  Sender: FDA-Public Use
  Company Number: F01200401678

PATIENT
  Age: 64 Year
  Sex: Male

DRUGS (2)
  1. OXALIPLATIN - SOLUTION - 130 MG/M2 [Suspect]
     Indication: COLORECTAL CANCER METASTATIC
     Dosage: 130 MG/M2 Q3W INTRAVENOUS NOS
     Route: 042
  2. CAPECITABINE - TABLET - 1000 MG/M2 [Suspect]
     Dosage: 1000 MG/M2 TWICE DAILY FROM DAY 1 DAY TO DAY 15, Q3W ORAL
     Route: 048

REACTIONS (1)
  - CEREBROVASCULAR ACCIDENT [None]
